FAERS Safety Report 12969453 (Version 1)
Quarter: 2016Q4

REPORT INFORMATION
  Report Type: Other
  Country: US (occurrence: US)
  Receive Date: 20161123
  Receipt Date: 20161123
  Transmission Date: 20170207
  Serious: Yes (Other)
  Sender: FDA-Public Use
  Company Number: US-BELCHER PHARMACEUTICALS, LLC-2016VTS00279

PATIENT
  Sex: Male
  Weight: 109.75 kg

DRUGS (3)
  1. METOPROLOL. [Concomitant]
     Active Substance: METOPROLOL
  2. HYOSCYAMINE SULFATE. [Suspect]
     Active Substance: HYOSCYAMINE SULFATE
     Indication: ABDOMINAL PAIN UPPER
     Dosage: 2 TABLETS, PER DAY
     Route: 048
     Dates: start: 201512, end: 201601
  3. HYOSCYAMINE SULFATE. [Suspect]
     Active Substance: HYOSCYAMINE SULFATE
     Dosage: 1 TABLETS, ONCE A DAY
     Route: 048
     Dates: start: 201606, end: 201607

REACTIONS (11)
  - Nausea [Recovered/Resolved]
  - Asthenia [Not Recovered/Not Resolved]
  - Disorientation [Recovering/Resolving]
  - Ligament rupture [Unknown]
  - Dizziness [Not Recovered/Not Resolved]
  - Dry mouth [Recovering/Resolving]
  - Dysarthria [Unknown]
  - Gait disturbance [Not Recovered/Not Resolved]
  - Flushing [Recovered/Resolved]
  - Dyspepsia [Recovered/Resolved]
  - Hyperhidrosis [Recovered/Resolved]

NARRATIVE: CASE EVENT DATE: 2016
